FAERS Safety Report 7295518-0 (Version None)
Quarter: 2011Q1

REPORT INFORMATION
  Report Type: 
  Country: None (occurrence: None)
  Receive Date: 20110216
  Receipt Date: 20101123
  Transmission Date: 20110831
  Serious: No
  Sender: FDA-Public Use
  Company Number: US-ABBOTT-10P-163-0687344-00

PATIENT
  Sex: Female

DRUGS (1)
  1. SIMCOR [Suspect]
     Indication: PRODUCT USED FOR UNKNOWN INDICATION
     Route: 048
     Dates: start: 20101116

REACTIONS (5)
  - GASTRITIS [None]
  - DIARRHOEA [None]
  - PRURITUS [None]
  - PARAESTHESIA [None]
  - ABDOMINAL PAIN UPPER [None]
